FAERS Safety Report 8618071-5 (Version None)
Quarter: 2012Q3

REPORT INFORMATION
  Report Type: 
  Country: None (occurrence: None)
  Receive Date: 20120824
  Receipt Date: 20120426
  Transmission Date: 20120928
  Serious: No
  Sender: FDA-Public Use
  Company Number: US-ASTRAZENECA-2012SE27348

PATIENT
  Age: 86 Year
  Sex: Female
  Weight: 64.4 kg

DRUGS (4)
  1. SYMBICORT [Suspect]
     Indication: CHRONIC OBSTRUCTIVE PULMONARY DISEASE
     Dosage: 160/4.5, 1 PUFF BID
     Route: 055
  2. BLOOD PRESSURE [Concomitant]
  3. SPIRIVA [Concomitant]
  4. THYROID PILLS [Concomitant]

REACTIONS (2)
  - ANOSMIA [None]
  - AGEUSIA [None]
